FAERS Safety Report 11600611 (Version 1)
Quarter: 2015Q4

REPORT INFORMATION
  Report Type: Spontaneous
  Country: US (occurrence: US)
  Receive Date: 20151006
  Receipt Date: 20151006
  Transmission Date: 20160304
  Serious: Yes (Other)
  Sender: FDA-Public Use
  Company Number: US-AMGEN-USASP2014100672

PATIENT
  Age: 77 Year
  Sex: Female

DRUGS (2)
  1. GABAPENTIN. [Concomitant]
     Active Substance: GABAPENTIN
     Indication: NEUROPATHY PERIPHERAL
  2. PROLIA [Suspect]
     Active Substance: DENOSUMAB
     Indication: OSTEOPOROSIS POSTMENOPAUSAL
     Dosage: UNK
     Route: 065
     Dates: start: 201406

REACTIONS (7)
  - Irritability [Unknown]
  - Nerve compression [Unknown]
  - Drug ineffective [Unknown]
  - Skin reaction [Unknown]
  - Pneumonia [Not Recovered/Not Resolved]
  - Blister [Unknown]
  - Arthralgia [Unknown]

NARRATIVE: CASE EVENT DATE: 201410
